FAERS Safety Report 14639906 (Version 1)
Quarter: 2018Q1

REPORT INFORMATION
  Report Type: Spontaneous
  Country: US (occurrence: US)
  Receive Date: 20180315
  Receipt Date: 20180315
  Transmission Date: 20180509
  Serious: Yes (Other)
  Sender: FDA-Public Use
  Company Number: US-AMGEN-USASP2018032371

PATIENT
  Age: 62 Year
  Sex: Female

DRUGS (2)
  1. FORTEO [Concomitant]
     Active Substance: TERIPARATIDE
  2. PROLIA [Suspect]
     Active Substance: DENOSUMAB
     Indication: OSTEOPOROSIS POSTMENOPAUSAL
     Dosage: Q6MO
     Route: 065

REACTIONS (5)
  - Intervertebral disc injury [Unknown]
  - Fall [Unknown]
  - Paraesthesia [Recovered/Resolved]
  - Blood calcium abnormal [Unknown]
  - Corrective lens user [Unknown]
